FAERS Safety Report 8590679 (Version 3)
Quarter: 2014Q2

REPORT INFORMATION
  Report Type: Report from Study
  Country: DE (occurrence: DE)
  Receive Date: 20120601
  Receipt Date: 20140421
  Transmission Date: 20141212
  Serious: Yes (Hospitalization)
  Sender: FDA-Public Use
  Company Number: PHHY2012DE046497

PATIENT
  Sex: Male
  Weight: 65 kg

DRUGS (8)
  1. FTY 720 [Suspect]
     Indication: MULTIPLE SCLEROSIS
     Dosage: 0.5 MG, PER DAY
     Route: 048
     Dates: start: 20111005, end: 20120916
  2. FTY 720 [Suspect]
     Dosage: 0.5 MG, PER DAY
     Route: 048
     Dates: start: 20130102
  3. BACLOFEN [Concomitant]
     Indication: MUSCLE SPASTICITY
     Dosage: 25 MG, PRN
     Route: 048
     Dates: start: 20110930, end: 20111019
  4. BACLOFEN [Concomitant]
     Dosage: 10 MG, TID
     Route: 048
     Dates: start: 20131115
  5. PARACETAMOL [Concomitant]
     Dosage: 2 G, DAILY
     Route: 048
     Dates: start: 20130412, end: 20130414
  6. ACC AKUT [Concomitant]
     Dosage: 1200 MG, UNK
     Dates: start: 20130412, end: 20130415
  7. CODEIN [Concomitant]
     Dosage: 20 MG, UNK
     Dates: start: 20130412, end: 20130414
  8. AZATHIOPRIN [Concomitant]
     Dosage: 100 MG, BID
     Dates: start: 20070904, end: 201009

REACTIONS (3)
  - Muscle spasms [Recovered/Resolved]
  - Pain [Not Recovered/Not Resolved]
  - Muscle spasticity [Not Recovered/Not Resolved]
